FAERS Safety Report 25478676 (Version 1)
Quarter: 2025Q2

REPORT INFORMATION
  Report Type: Spontaneous
  Country: CN (occurrence: CN)
  Receive Date: 20250625
  Receipt Date: 20250625
  Transmission Date: 20250717
  Serious: Yes (Other)
  Sender: BAYER HEALTHCARE PHARMACEUTICALS INC.
  Company Number: CN-BAYER-2025A083709

PATIENT
  Age: 90 Year
  Sex: Male
  Weight: 60 kg

DRUGS (3)
  1. AVELOX [Suspect]
     Active Substance: MOXIFLOXACIN HYDROCHLORIDE
     Indication: Pneumonia
     Dosage: 0.4 G, QD
     Route: 041
     Dates: start: 20250402, end: 20250403
  2. HERBALS [Suspect]
     Active Substance: HERBALS
     Indication: Pneumonia
     Dosage: 30 ML, QD, DISSOLVED IN 0.9% NORMAL SALINE 100 ML
     Route: 041
     Dates: start: 20250402, end: 20250402
  3. CEFTRIAXONE SODIUM [Concomitant]
     Active Substance: CEFTRIAXONE SODIUM
     Indication: Pneumonia
     Dosage: 2 G, QD, DISSOLVED IN 0.9% NORMAL SALINE 100 ML
     Route: 041
     Dates: start: 20250402, end: 20250403

REACTIONS (8)
  - Erysipelas [Recovering/Resolving]
  - Erythema [Recovering/Resolving]
  - Skin swelling [Recovering/Resolving]
  - Pain in extremity [Not Recovered/Not Resolved]
  - Injection site erythema [None]
  - Injection site pain [Recovering/Resolving]
  - Blister [None]
  - Skin weeping [None]

NARRATIVE: CASE EVENT DATE: 20250402
